FAERS Safety Report 9685559 (Version 1)
Quarter: 2013Q4

REPORT INFORMATION
  Report Type: Spontaneous
  Country: US (occurrence: US)
  Receive Date: 20131113
  Receipt Date: 20131113
  Transmission Date: 20140711
  Serious: No
  Sender: FDA-Public Use
  Company Number: US-009507513-1311USA003060

PATIENT
  Age: 79 Year
  Sex: Female

DRUGS (3)
  1. ZETIA [Suspect]
     Dosage: 10 MG, QD
     Route: 048
  2. PROTONIX [Concomitant]
  3. ASPIRIN [Concomitant]

REACTIONS (2)
  - Myalgia [Recovered/Resolved]
  - Arthralgia [Recovered/Resolved]
